FAERS Safety Report 11443107 (Version 1)
Quarter: 2015Q3

REPORT INFORMATION
  Report Type: Spontaneous
  Country: US (occurrence: US)
  Receive Date: 20150901
  Receipt Date: 20150901
  Transmission Date: 20151125
  Serious: Yes (Hospitalization, Other)
  Sender: FDA-Public Use
  Company Number: US-GLAXOSMITHKLINE-US2015123985

PATIENT
  Age: 46 Year
  Sex: Female

DRUGS (1)
  1. BENLYSTA [Suspect]
     Active Substance: BELIMUMAB
     Indication: SYSTEMIC LUPUS ERYTHEMATOSUS
     Dosage: UNK
     Route: 041
     Dates: start: 2014, end: 201501

REACTIONS (7)
  - Anaemia [Unknown]
  - Adverse event [Unknown]
  - Nephritis [Unknown]
  - Transfusion [Unknown]
  - Chemotherapy [Unknown]
  - Biopsy kidney [Recovered/Resolved with Sequelae]
  - Protein urine present [Unknown]

NARRATIVE: CASE EVENT DATE: 2015
